FAERS Safety Report 11451486 (Version 1)
Quarter: 2015Q3

REPORT INFORMATION
  Report Type: Spontaneous
  Country: GB (occurrence: GB)
  Receive Date: 20150903
  Receipt Date: 20150903
  Transmission Date: 20151125
  Serious: No
  Sender: FDA-Public Use
  Company Number: GB-JNJFOC-20150818502

PATIENT
  Sex: Female

DRUGS (3)
  1. DUROGESIC DTRANS [Suspect]
     Active Substance: FENTANYL
     Indication: INTERVERTEBRAL DISC PROTRUSION
     Route: 062
  2. DUROGESIC DTRANS [Suspect]
     Active Substance: FENTANYL
     Indication: INTERVERTEBRAL DISC PROTRUSION
     Route: 062
  3. DUROGESIC DTRANS [Suspect]
     Active Substance: FENTANYL
     Indication: INTERVERTEBRAL DISC PROTRUSION
     Route: 062

REACTIONS (9)
  - Product adhesion issue [Unknown]
  - Drug withdrawal syndrome [Recovering/Resolving]
  - Application site pain [Unknown]
  - Inappropriate schedule of drug administration [Unknown]
  - Hyperaesthesia [Unknown]
  - Wrong technique in product usage process [Unknown]
  - Hyperhidrosis [Recovering/Resolving]
  - Drug ineffective [Unknown]
  - Breakthrough pain [Unknown]
